FAERS Safety Report 7580417-7 (Version None)
Quarter: 2011Q2

REPORT INFORMATION
  Report Type: 
  Country: None (occurrence: None)
  Receive Date: 20110629
  Receipt Date: 20110106
  Transmission Date: 20111010
  Serious: Yes (Hospitalization, Other)
  Sender: FDA-Public Use
  Company Number: US-BAYER-201033309NA

PATIENT
  Age: 25 Year
  Sex: Female
  Weight: 136 kg

DRUGS (9)
  1. FLUCONAZOLE [Concomitant]
     Dosage: 150 MG, UNK
     Route: 048
     Dates: start: 20080722
  2. ONDANSETRON [Concomitant]
     Dosage: 8 MG, UNK
     Route: 048
     Dates: start: 20080722
  3. YAZ [Suspect]
     Indication: CONTRACEPTION
     Route: 048
     Dates: start: 20080701, end: 20081015
  4. NEXIUM [Concomitant]
     Indication: DYSPEPSIA
     Dosage: 40 MG, UNK
     Route: 048
     Dates: start: 20030101
  5. AMOXICILINA [Concomitant]
     Dosage: 500 MG, UNK
     Route: 048
     Dates: start: 20080722
  6. YASMIN [Suspect]
     Route: 048
     Dates: start: 20080701, end: 20081015
  7. OMEPRAZOLE [Concomitant]
     Dosage: 20 MG, UNK
     Route: 048
     Dates: start: 20080911
  8. CITALOPRAM HYDROBROMIDE [Concomitant]
     Indication: DEPRESSION
     Dosage: 20 MG, UNK
     Route: 048
     Dates: start: 20080711
  9. OXYCODONE HCL [Concomitant]
     Dosage: 325 MG, UNK
     Route: 048
     Dates: start: 20080722

REACTIONS (6)
  - DEPRESSION [None]
  - OEDEMA PERIPHERAL [None]
  - DEEP VEIN THROMBOSIS [None]
  - ERYTHEMA [None]
  - PAIN IN EXTREMITY [None]
  - AFFECTIVE DISORDER [None]
